FAERS Safety Report 16439790 (Version 1)
Quarter: 2019Q2

REPORT INFORMATION
  Report Type: Spontaneous
  Country: US (occurrence: US)
  Receive Date: 20190617
  Receipt Date: 20190617
  Transmission Date: 20190711
  Serious: No
  Sender: FDA-Public Use
  Company Number: US-PFIZER INC-2019251897

PATIENT
  Age: 77 Year
  Sex: Male
  Weight: 129 kg

DRUGS (5)
  1. GABAPENTIN. [Concomitant]
     Active Substance: GABAPENTIN
     Indication: NEURALGIA
     Dosage: UNK, 3X/DAY (600MG, 1-2 THREE TIMES DAILY)
     Dates: start: 2018, end: 20190418
  2. LYRICA [Suspect]
     Active Substance: PREGABALIN
     Indication: ARTHRALGIA
  3. LYRICA [Suspect]
     Active Substance: PREGABALIN
     Indication: BACK PAIN
     Dosage: UNK
     Dates: start: 20190419, end: 20190607
  4. LYRICA [Suspect]
     Active Substance: PREGABALIN
     Indication: NEURALGIA
     Dosage: 75 MG, 2X/DAY (75MG BY MOUTH TWICE DAILY)
     Route: 048
     Dates: start: 20190416, end: 201904
  5. TRAMADOL. [Concomitant]
     Active Substance: TRAMADOL
     Indication: NEURALGIA
     Dosage: UNK, AS NEEDED (50MG 1-2 THREE TIMES DAILY AS NEEDED)
     Dates: start: 2018

REACTIONS (4)
  - Intentional product misuse [Unknown]
  - Nausea [Recovered/Resolved]
  - Body temperature increased [Recovered/Resolved]
  - Burning sensation [Recovered/Resolved]

NARRATIVE: CASE EVENT DATE: 2019
